FAERS Safety Report 18893317 (Version 3)
Quarter: 2021Q1

REPORT INFORMATION
  Report Type: Spontaneous
  Country: US (occurrence: US)
  Receive Date: 20210215
  Receipt Date: 20210319
  Transmission Date: 20210420
  Serious: Yes (Other)
  Sender: FDA-Public Use
  Company Number: US-SA-2021SA045096

PATIENT
  Age: 57 Year
  Sex: Female
  Weight: 58 kg

DRUGS (1)
  1. DULCOLAX NOS [Suspect]
     Active Substance: BISACODYL OR DOCUSATE SODIUM
     Dosage: 2 DF
     Route: 048
     Dates: start: 20210130

REACTIONS (12)
  - Asthenia [Unknown]
  - Traumatic haemorrhage [Recovered/Resolved]
  - Syncope [Recovered/Resolved]
  - Gait inability [Unknown]
  - Concussion [Recovered/Resolved]
  - Dizziness [Unknown]
  - Head injury [Recovered/Resolved]
  - Loss of consciousness [Recovered/Resolved]
  - Post-traumatic pain [Recovered/Resolved]
  - Skin laceration [Recovered/Resolved]
  - Feeling abnormal [Unknown]
  - Back pain [Recovered/Resolved]

NARRATIVE: CASE EVENT DATE: 2021
